FAERS Safety Report 5213307-5 (Version None)
Quarter: 2007Q1

REPORT INFORMATION
  Report Type: 
  Country: None (occurrence: None)
  Receive Date: 20070119
  Receipt Date: 20070116
  Transmission Date: 20070707
  Serious: Yes (Other)
  Sender: FDA-Public Use
  Company Number: US-JNJFOC-20070103797

PATIENT
  Age: 33 Year
  Sex: Female
  Weight: 117.94 kg

DRUGS (2)
  1. TOPAMAX [Suspect]
     Indication: HEADACHE
  2. REBIF [Concomitant]

REACTIONS (2)
  - HEART RATE IRREGULAR [None]
  - HYPOKALAEMIA [None]
